FAERS Safety Report 15518859 (Version 3)
Quarter: 2020Q4

REPORT INFORMATION
  Report Type: Report from Study
  Country: US (occurrence: US)
  Receive Date: 20181017
  Receipt Date: 20201103
  Transmission Date: 20210113
  Serious: Yes (Hospitalization, Disabling, Other)
  Sender: FDA-Public Use
  Company Number: US-SA-2017SA019586

PATIENT

DRUGS (24)
  1. ALPRAZOLAM. [Concomitant]
     Active Substance: ALPRAZOLAM
  2. BILBERRY FRUIT [Concomitant]
     Dosage: 80 MG
  3. ALPHA LIPOIC ACID [Concomitant]
     Active Substance: .ALPHA.-LIPOIC ACID
     Dosage: 200 MG
  4. METFORMIN [Concomitant]
     Active Substance: METFORMIN HYDROCHLORIDE
  5. MOXIFLOXACIN. [Concomitant]
     Active Substance: MOXIFLOXACIN
  6. CHOLECALCIFEROL [Concomitant]
     Active Substance: CHOLECALCIFEROL
  7. CLOPIDOGREL [Concomitant]
     Active Substance: CLOPIDOGREL BISULFATE
     Dosage: 75 MG
  8. GARCINIA CAMBOGIA COMP [Concomitant]
     Active Substance: HERBALS\GARCINIA CAMBOGIA FRUIT
  9. NOVOLOG [Concomitant]
     Active Substance: INSULIN ASPART
  10. CINNAMON BARK [Concomitant]
     Active Substance: CINNAMON\HERBALS
  11. PREDNISOLONE ACETATE. [Concomitant]
     Active Substance: PREDNISOLONE ACETATE
  12. INSULIN GLARGINE [Suspect]
     Active Substance: INSULIN GLARGINE
     Dosage: 95-165 UNITS, QD
     Route: 058
  13. BERBERINE [Concomitant]
     Active Substance: BERBERINE
  14. DOCUSATE [Concomitant]
     Active Substance: DOCUSATE
     Dosage: 100 MG
  15. BASAGLAR [Concomitant]
     Active Substance: INSULIN GLARGINE
  16. ASPIRIN 81 [Concomitant]
     Active Substance: ASPIRIN
     Dosage: 81 MG
  17. CEPHALEXINE [Concomitant]
     Active Substance: CEPHALEXIN
     Dosage: 500 MG
  18. POLYETHYLENE GLYCOL 3350. [Concomitant]
     Active Substance: POLYETHYLENE GLYCOL 3350
     Dosage: 17 G
  19. INSULIN GLARGINE [Suspect]
     Active Substance: INSULIN GLARGINE
     Indication: TYPE 2 DIABETES MELLITUS
     Dosage: 85 IU, BID
     Route: 058
     Dates: start: 20020131
  20. INSULIN GLARGINE [Suspect]
     Active Substance: INSULIN GLARGINE
     Dosage: 90 IU, Q12H
     Route: 058
  21. ACETAMINOPHEN. [Concomitant]
     Active Substance: ACETAMINOPHEN
     Dosage: 325 MG
     Route: 048
  22. HYDROCODONE/ACETAMINOPHEN [Concomitant]
     Active Substance: ACETAMINOPHEN\HYDROCODONE
  23. KETOROLAC [Concomitant]
     Active Substance: KETOROLAC TROMETHAMINE
  24. LISINOPRIL HCT [HYDROCHLOROTHIAZIDE;LISINOPRIL] [Concomitant]
     Active Substance: HYDROCHLOROTHIAZIDE\LISINOPRIL

REACTIONS (11)
  - Fall [Unknown]
  - Eye disorder [Not Recovered/Not Resolved]
  - Cerebrovascular accident [Recovered/Resolved]
  - Hypertension [Unknown]
  - Diabetic neuropathy [Not Recovered/Not Resolved]
  - Off label use [Unknown]
  - Balance disorder [Recovered/Resolved]
  - Optic nerve injury [Unknown]
  - Tumour invasion [Recovered/Resolved]
  - Blindness unilateral [Not Recovered/Not Resolved]
  - VIIth nerve injury [Not Recovered/Not Resolved]

NARRATIVE: CASE EVENT DATE: 2013
